FAERS Safety Report 4751395-0 (Version None)
Quarter: 2005Q3

REPORT INFORMATION
  Report Type: 
  Country: None (occurrence: None)
  Receive Date: 20050824
  Receipt Date: 20050812
  Transmission Date: 20060218
  Serious: Yes (Other)
  Sender: FDA-Public Use
  Company Number: GB-ROCHE-414552

PATIENT
  Age: 30 Year
  Sex: Male

DRUGS (4)
  1. PEGASYS [Suspect]
     Indication: DRUG USE FOR UNKNOWN INDICATION
     Route: 065
     Dates: start: 20050405
  2. RIBAVIRIN [Suspect]
     Indication: DRUG USE FOR UNKNOWN INDICATION
     Route: 065
     Dates: start: 20050405
  3. COMBIVIR [Concomitant]
  4. EFAVIRENZ [Concomitant]

REACTIONS (2)
  - ABDOMINAL PAIN UPPER [None]
  - TUBERCULOSIS [None]
